FAERS Safety Report 8524270-3 (Version None)
Quarter: 2012Q3

REPORT INFORMATION
  Report Type: 
  Country: None (occurrence: None)
  Receive Date: 20120720
  Receipt Date: 20120717
  Transmission Date: 20120928
  Serious: Yes (Hospitalization)
  Sender: FDA-Public Use
  Company Number: FR-EISAI INC-E2020-11084-SPO-FR

PATIENT
  Sex: Female

DRUGS (7)
  1. ARICEPT [Suspect]
     Indication: DEMENTIA ALZHEIMER'S TYPE
     Route: 048
     Dates: start: 20100201
  2. FLUTICASONE + SALMELEROL [Concomitant]
     Indication: ASTHMA
     Route: 048
     Dates: start: 20120401, end: 20120101
  3. ZOLPIDEM [Concomitant]
     Route: 048
  4. PERINDOPRIL ERBUMINE [Concomitant]
     Route: 048
  5. ATROVASTATINE [Concomitant]
     Route: 048
  6. MIANSERINE [Concomitant]
     Route: 048
  7. ALPRAZOLAM [Concomitant]
     Route: 048

REACTIONS (1)
  - ELECTROCARDIOGRAM QT PROLONGED [None]
